FAERS Safety Report 8861758 (Version 1)
Quarter: 2012Q4

REPORT INFORMATION
  Report Type: Spontaneous
  Country: US (occurrence: None)
  Receive Date: 20121026
  Receipt Date: 20121026
  Transmission Date: 20130627
  Serious: Yes (Other)
  Sender: FDA-Public Use
  Company Number: None

PATIENT
  Age: 86 Year
  Sex: Male
  Weight: 87.09 kg

DRUGS (5)
  1. METHYLPREDNISOLONE ACETATE [Suspect]
     Indication: CATARACT OPERATION
     Dosage: intraocular
     Dates: start: 20121010, end: 20121010
  2. FUROSEMIDE [Concomitant]
  3. PREDNISONE [Concomitant]
  4. BYSTOLIC [Concomitant]
  5. OMEPRAZOLE [Concomitant]

REACTIONS (1)
  - Photophobia [None]
